FAERS Safety Report 4431000-3 (Version None)
Quarter: 2004Q3

REPORT INFORMATION
  Report Type: 
  Country: None (occurrence: None)
  Receive Date: 20040817
  Receipt Date: 20040803
  Transmission Date: 20050211
  Serious: Yes (Hospitalization)
  Sender: FDA-Public Use
  Company Number: DRON00204001047

PATIENT
  Age: 53 Year
  Sex: Female
  Weight: 59.09 kg

DRUGS (5)
  1. MARINOL [Suspect]
     Indication: PROPHYLAXIS OF NAUSEA AND VOMITING
     Dosage: 2.5 MG BID PO
     Route: 048
     Dates: start: 20040408, end: 20040408
  2. ONDANSETRON HCL [Suspect]
     Indication: PROPHYLAXIS OF NAUSEA AND VOMITING
     Dosage: 16 MG ONCE IV
     Route: 042
     Dates: start: 20040408, end: 20040408
  3. DEXAMETHASONE [Suspect]
     Indication: PROPHYLAXIS
     Dosage: 20 MG DAILY PO
     Route: 048
     Dates: start: 20040408, end: 20040408
  4. ULTRACET (TRAMADOL) [Concomitant]
  5. NOVOLIN (INSULIN) [Concomitant]

REACTIONS (8)
  - BACK PAIN [None]
  - BLOOD POTASSIUM DECREASED [None]
  - CHEST PAIN [None]
  - GLYCOSYLATED HAEMOGLOBIN INCREASED [None]
  - HAEMOGLOBIN DECREASED [None]
  - HEADACHE [None]
  - MYOCARDIAL INFARCTION [None]
  - PROTHROMBIN TIME PROLONGED [None]
